FAERS Safety Report 17580024 (Version 1)
Quarter: 2020Q1

REPORT INFORMATION
  Report Type: Spontaneous
  Country: HU (occurrence: HU)
  Receive Date: 20200325
  Receipt Date: 20200325
  Transmission Date: 20200409
  Serious: Yes (Life-Threatening, Hospitalization, Other)
  Sender: FDA-Public Use
  Company Number: HU-PFIZER INC-2020121852

PATIENT
  Age: 36 Year
  Sex: Female
  Weight: 54.9 kg

DRUGS (5)
  1. DOXYCYCLINE. [Concomitant]
     Active Substance: DOXYCYCLINE
     Indication: LYME DISEASE
     Dosage: UNK
  2. LEVOFLOXACIN. [Concomitant]
     Active Substance: LEVOFLOXACIN
     Indication: LYME DISEASE
     Dosage: UNK
  3. NOACID [DIHYDROXYALUMINUM SODIUM CARBONATE] [Concomitant]
     Active Substance: DIHYDROXYALUMINUM SODIUM CARBONATE
     Indication: GASTROOESOPHAGEAL REFLUX DISEASE
     Dosage: 40 MG, 1X/DAY (IN THE MORNING)
  4. AZITHROMYCIN ANHYDROUS. [Suspect]
     Active Substance: AZITHROMYCIN ANHYDROUS
     Indication: LYME DISEASE
     Dosage: UNK
  5. KLION [Concomitant]
     Indication: LYME DISEASE
     Dosage: UNK

REACTIONS (54)
  - Blood urea decreased [Unknown]
  - Urine sodium decreased [Unknown]
  - Burning sensation [Unknown]
  - Dizziness [Recovered/Resolved]
  - Somnolence [Unknown]
  - Oedema peripheral [Unknown]
  - Brain oedema [Recovered/Resolved]
  - Blood osmolarity abnormal [Unknown]
  - Haemorrhoids [Unknown]
  - Dry skin [Unknown]
  - Bradycardia [Unknown]
  - Red blood cell count decreased [Unknown]
  - Polydipsia [Unknown]
  - Haematocrit decreased [Unknown]
  - Pyrexia [Recovered/Resolved]
  - Respiratory syncytial virus test positive [Unknown]
  - Pupil fixed [Unknown]
  - Urine chloride decreased [Unknown]
  - Vomiting [Unknown]
  - Gallbladder polyp [Unknown]
  - Gastrointestinal bacterial overgrowth [Unknown]
  - Urine potassium decreased [Unknown]
  - Blood iron increased [Unknown]
  - Coma [Unknown]
  - Dehydration [Unknown]
  - Abdominal distension [Unknown]
  - C-reactive protein increased [Unknown]
  - Mean platelet volume decreased [Unknown]
  - Hyponatraemia [Recovered/Resolved]
  - Pain [Unknown]
  - Protein total increased [Unknown]
  - Panic attack [Unknown]
  - Varicella virus test positive [Unknown]
  - Loss of consciousness [Recovering/Resolving]
  - Diverticulitis [Unknown]
  - Consciousness fluctuating [Unknown]
  - Blood sodium increased [Unknown]
  - Mean cell volume increased [Unknown]
  - Monocyte count increased [Unknown]
  - Hypoosmolar state [Recovered/Resolved]
  - Biliary colic [Unknown]
  - Dysphonia [Unknown]
  - Anxiety [Unknown]
  - Altered state of consciousness [Recovering/Resolving]
  - Headache [Unknown]
  - Mean cell haemoglobin increased [Unknown]
  - Retrograde amnesia [Unknown]
  - Polyuria [Unknown]
  - Hypertriglyceridaemia [Unknown]
  - Abdominal discomfort [Unknown]
  - Nausea [Recovered/Resolved]
  - Aspartate aminotransferase increased [Unknown]
  - Alanine aminotransferase increased [Unknown]
  - Blood albumin increased [Unknown]

NARRATIVE: CASE EVENT DATE: 201605
